FAERS Safety Report 10308316 (Version 3)
Quarter: 2014Q4

REPORT INFORMATION
  Report Type: Spontaneous
  Country: US (occurrence: US)
  Receive Date: 20140716
  Receipt Date: 20141226
  Transmission Date: 20150528
  Serious: Yes (Hospitalization)
  Sender: FDA-Public Use
  Company Number: US-BAYER-2014-106642

PATIENT
  Age: 24 Year
  Sex: Female
  Weight: 72.56 kg

DRUGS (1)
  1. MIRENA [Suspect]
     Active Substance: LEVONORGESTREL
     Indication: CONTRACEPTION
     Dosage: 20 MCG/24HR, CONT
     Route: 015
     Dates: start: 20131119, end: 20131201

REACTIONS (7)
  - Uterine perforation [None]
  - Injury [None]
  - Off label use [None]
  - Procedural pain [Not Recovered/Not Resolved]
  - Medical device discomfort [None]
  - Medical device pain [None]
  - Abdominal pain [None]

NARRATIVE: CASE EVENT DATE: 20131129
